FAERS Safety Report 23766596 (Version 1)
Quarter: 2024Q2

REPORT INFORMATION
  Report Type: Spontaneous
  Country: GB (occurrence: GB)
  Receive Date: 20240422
  Receipt Date: 20240422
  Transmission Date: 20240716
  Serious: Yes (Hospitalization)
  Sender: FDA-Public Use
  Company Number: GB-GERMAN-LIT/GBR/24/0005875

PATIENT
  Age: 3 Decade
  Sex: Male

DRUGS (3)
  1. PREGABALIN [Suspect]
     Active Substance: PREGABALIN
     Indication: Intellectual disability
  2. PREGABALIN [Suspect]
     Active Substance: PREGABALIN
  3. OLANZAPINE [Suspect]
     Active Substance: OLANZAPINE
     Indication: Intellectual disability

REACTIONS (2)
  - Drug ineffective for unapproved indication [Unknown]
  - Drug effective for unapproved indication [Unknown]
